FAERS Safety Report 24537662 (Version 1)
Quarter: 2024Q4

REPORT INFORMATION
  Report Type: Spontaneous
  Country: US (occurrence: US)
  Receive Date: 20241023
  Receipt Date: 20241023
  Transmission Date: 20250115
  Serious: Yes (Other)
  Sender: SANDOZ
  Company Number: US-002147023-PHHY2019US133095

PATIENT
  Age: 24 Year
  Sex: Male

DRUGS (1)
  1. CLONAZEPAM [Suspect]
     Active Substance: CLONAZEPAM
     Indication: Product used for unknown indication
     Dosage: DISINTEGRATING TABLETS CONTAINED SODIUM LAURYL SULFATE
     Route: 048

REACTIONS (2)
  - Mast cell activation syndrome [Unknown]
  - Therapeutic response decreased [Unknown]
